FAERS Safety Report 26068931 (Version 2)
Quarter: 2025Q4

REPORT INFORMATION
  Report Type: Report from Study
  Country: US (occurrence: US)
  Receive Date: 20251120
  Receipt Date: 20251125
  Transmission Date: 20260118
  Serious: Yes (Hospitalization)
  Sender: ASTELLAS
  Company Number: US-ASTELLAS-2025-AER-064167

PATIENT
  Sex: Male

DRUGS (2)
  1. XTANDI [Suspect]
     Active Substance: ENZALUTAMIDE
     Indication: Product used for unknown indication
     Dosage: 80 MG X 2 ONE DAY
     Route: 065
  2. XTANDI [Suspect]
     Active Substance: ENZALUTAMIDE
     Dosage: 80 MG X 1 ONE DAY
     Route: 065

REACTIONS (3)
  - Pruritus [Unknown]
  - Urticaria [Unknown]
  - Rash [Unknown]
